FAERS Safety Report 13970591 (Version 1)
Quarter: 2017Q3

REPORT INFORMATION
  Report Type: Spontaneous
  Country: HR (occurrence: HR)
  Receive Date: 20170914
  Receipt Date: 20170914
  Transmission Date: 20171128
  Serious: Yes (Other)
  Sender: FDA-Public Use
  Company Number: HR-009507513-1709HRV001794

PATIENT
  Age: 57 Year
  Sex: Female

DRUGS (1)
  1. ZEPATIER [Suspect]
     Active Substance: ELBASVIR\GRAZOPREVIR
     Indication: CHRONIC HEPATITIS C
     Dosage: 50/100 MG ONCE DAILY FOR 12 WEEKS
     Route: 048
     Dates: start: 20170424

REACTIONS (3)
  - Abdominal pain upper [Recovering/Resolving]
  - Nausea [Recovering/Resolving]
  - Facial paralysis [Recovering/Resolving]

NARRATIVE: CASE EVENT DATE: 20170704
